FAERS Safety Report 23721294 (Version 2)
Quarter: 2024Q3

REPORT INFORMATION
  Report Type: Report from Study
  Country: US (occurrence: US)
  Receive Date: 20240409
  Receipt Date: 20240909
  Transmission Date: 20241017
  Serious: Yes (Other)
  Sender: ROCHE
  Company Number: US-ROCHE-3537453

PATIENT
  Age: 42 Year
  Sex: Female

DRUGS (1)
  1. XOLAIR [Suspect]
     Active Substance: OMALIZUMAB
     Indication: Seasonal allergy
     Dosage: UNKNOWN
     Route: 065

REACTIONS (3)
  - Skin cancer [Unknown]
  - Nasopharyngitis [Unknown]
  - Off label use [Unknown]
